FAERS Safety Report 8357312-9 (Version None)
Quarter: 2012Q2

REPORT INFORMATION
  Report Type: 
  Country: None (occurrence: None)
  Receive Date: 20120514
  Receipt Date: 20120510
  Transmission Date: 20120825
  Serious: Yes (Other)
  Sender: FDA-Public Use
  Company Number: FR-ROCHE-1068027

PATIENT
  Sex: Male

DRUGS (3)
  1. FENOFIBRATE [Concomitant]
  2. XELODA [Suspect]
     Indication: COLON CANCER
     Route: 048
     Dates: start: 20110712, end: 20111004
  3. ISOPTIN [Concomitant]

REACTIONS (3)
  - SYMBLEPHARON [None]
  - ENTROPION [None]
  - KERATITIS [None]
